FAERS Safety Report 9147952 (Version 2)
Quarter: 2013Q1

REPORT INFORMATION
  Report Type: Spontaneous
  Country: US (occurrence: US)
  Receive Date: 20130301
  Receipt Date: 20130327
  Transmission Date: 20140127
  Serious: Yes (Life-Threatening, Other)
  Sender: FDA-Public Use
  Company Number: US-RB-050503-13

PATIENT
  Age: 56 Year
  Sex: Female
  Weight: 36 kg

DRUGS (4)
  1. SUBOXONE FILM [Suspect]
     Indication: DRUG DEPENDENCE
     Dosage: SUBOXONE FILM
     Route: 060
     Dates: start: 201203, end: 201301
  2. SUBOXONE TABLET [Suspect]
     Indication: DRUG DEPENDENCE
     Route: 060
     Dates: start: 201110, end: 201203
  3. UNSPECIFIED NEUBULIZER [Concomitant]
     Indication: CHRONIC OBSTRUCTIVE PULMONARY DISEASE
     Dosage: DOSING DETAILS UNKNOWN
     Route: 055
  4. UNSPECIFIED ANTIBIOTIC [Concomitant]
     Indication: CYSTITIS
     Dosage: DOSING DETAILS UNKNOWN
     Route: 048

REACTIONS (7)
  - Wrong technique in drug usage process [Recovered/Resolved]
  - Underdose [Recovered/Resolved]
  - Drug withdrawal syndrome [Not Recovered/Not Resolved]
  - Weight decreased [Not Recovered/Not Resolved]
  - Drug withdrawal convulsions [Recovered/Resolved]
  - Respiratory arrest [Recovered/Resolved]
  - Nausea [Not Recovered/Not Resolved]
